FAERS Safety Report 8604588-6 (Version None)
Quarter: 2012Q3

REPORT INFORMATION
  Report Type: 
  Country: None (occurrence: None)
  Receive Date: 20120807
  Receipt Date: 20120728
  Transmission Date: 20120928
  Serious: Yes (Hospitalization, Other)
  Sender: FDA-Public Use
  Company Number: ADR-2012-01413

PATIENT
  Sex: Male

DRUGS (2)
  1. LIORESAL [Suspect]
     Indication: MUSCLE SPASTICITY
     Dosage: 700 MCGIDAY
  2. LIORESAL [Suspect]
     Indication: CEREBRAL PALSY
     Dosage: 700 MCGIDAY

REACTIONS (3)
  - RED BLOOD CELL SEDIMENTATION RATE INCREASED [None]
  - PARAESTHESIA [None]
  - IMPLANT SITE ERYTHEMA [None]
